FAERS Safety Report 18811767 (Version 2)
Quarter: 2021Q1

REPORT INFORMATION
  Report Type: Spontaneous
  Country: FR (occurrence: FR)
  Receive Date: 20210129
  Receipt Date: 20210203
  Transmission Date: 20210419
  Serious: Yes (Other)
  Sender: FDA-Public Use
  Company Number: FR-ALLERGAN-2104477US

PATIENT
  Sex: Female
  Weight: 90 kg

DRUGS (6)
  1. PARKINANE LP [Suspect]
     Active Substance: TRIHEXYPHENIDYL HYDROCHLORIDE
     Indication: NERVOUS SYSTEM DISORDER
     Dosage: 1 CAPSULE AT 08H00, 1 CAPSULE AT 18H00
     Route: 065
  2. DEPAMIDE [Suspect]
     Active Substance: VALPROMIDE
     Indication: BIPOLAR DISORDER
     Dosage: 2 TABLETS AT 8H00, 2 TABLETS AT 12H00, 2 TABLETS AT 18H00
     Route: 065
  3. ESCITALOPRAM OXALATE ? BP [Suspect]
     Active Substance: ESCITALOPRAM OXALATE
     Indication: BIPOLAR DISORDER
     Dosage: 2 DF, AT 08H00
  4. NOCTRAN [Suspect]
     Active Substance: ACEPROMAZINE MALEATE\ACEPROMETAZINE\CLORAZEPATE DIPOTASSIUM
     Indication: BIPOLAR DISORDER
     Dosage: 10 MG, QHS
     Route: 065
  5. CLOPIXOL                           /00876702/ [Suspect]
     Active Substance: ZUCLOPENTHIXOL ACETATE
     Indication: BIPOLAR DISORDER
     Dosage: 1/DAY. EVERY 21 DAYS.ROUTE DEEP IM NEXT DATE: 16?JAN?2009, 06?FEB?2009, 27?FEB?2009
     Route: 030
     Dates: start: 20090116
  6. DITROPAN [Suspect]
     Active Substance: OXYBUTYNIN CHLORIDE
     Indication: URINARY INCONTINENCE
     Dosage: 1 TABLET AT 08H00, 1 TABLET AT 12H00, 1 TABLET AT 18H00
     Route: 065

REACTIONS (6)
  - Anticholinergic syndrome [Unknown]
  - Gastrointestinal disorder [Unknown]
  - Headache [Unknown]
  - Fatigue [Unknown]
  - Hypersensitivity [Unknown]
  - Off label use [Unknown]
